FAERS Safety Report 6229903-2 (Version None)
Quarter: 2009Q2

REPORT INFORMATION
  Report Type: 
  Country: None (occurrence: None)
  Receive Date: 20090615
  Receipt Date: 20090401
  Transmission Date: 20091009
  Serious: Yes (Hospitalization)
  Sender: FDA-Public Use
  Company Number: TR-ELI_LILLY_AND_COMPANY-TR200906002615

PATIENT
  Age: 46 Year
  Sex: Female

DRUGS (5)
  1. HUMALOG [Suspect]
     Indication: DIABETES MELLITUS
     Dosage: 17 UNK, 3/D
  2. LANTUS [Concomitant]
     Dosage: 28 IU, DAILY (1/D)
  3. GLIFOR [Concomitant]
     Indication: DIABETES MELLITUS
  4. NORVASC [Concomitant]
     Indication: HYPERTENSION
  5. VITAMINS [Concomitant]

REACTIONS (3)
  - BLOOD GLUCOSE INCREASED [None]
  - HEADACHE [None]
  - OCULAR HYPERAEMIA [None]
